FAERS Safety Report 7034121-4 (Version None)
Quarter: 2010Q4

REPORT INFORMATION
  Report Type: 
  Country: None (occurrence: None)
  Receive Date: 20101008
  Receipt Date: 20100817
  Transmission Date: 20110411
  Serious: Yes (Other)
  Sender: FDA-Public Use
  Company Number: US-BAYER-200929029NA

PATIENT
  Age: 34 Year
  Sex: Female
  Weight: 105 kg

DRUGS (5)
  1. YAZ [Suspect]
     Indication: ORAL CONTRACEPTION
     Route: 048
     Dates: start: 20080401
  2. YASMIN [Suspect]
  3. AMITRIPTYLINE [Concomitant]
     Indication: PAIN
     Dosage: TOTAL DAILY DOSE: 25 MG  UNIT DOSE: 25 MG
     Route: 048
     Dates: start: 20050331, end: 20090612
  4. ADDERALL 10 [Concomitant]
     Dates: start: 20090101
  5. GENERAL ANESTHESIA [Concomitant]
     Dates: start: 20090225, end: 20090225

REACTIONS (5)
  - ABDOMINAL DISTENSION [None]
  - ABDOMINAL PAIN UPPER [None]
  - CHOLECYSTITIS CHRONIC [None]
  - CHOLELITHIASIS OBSTRUCTIVE [None]
  - NAUSEA [None]
